FAERS Safety Report 21817125 (Version 2)
Quarter: 2023Q1

REPORT INFORMATION
  Report Type: Spontaneous
  Country: CN (occurrence: CN)
  Receive Date: 20230104
  Receipt Date: 20230222
  Transmission Date: 20230418
  Serious: Yes (Death, Hospitalization)
  Sender: FDA-Public Use
  Company Number: CN-PFIZER INC-PV202300000060

PATIENT
  Age: 85 Year
  Sex: Male
  Weight: 70 kg

DRUGS (3)
  1. TIGECYCLINE [Suspect]
     Active Substance: TIGECYCLINE
     Indication: Anti-infective therapy
     Dosage: 50 MG, 2X/DAY
     Route: 041
     Dates: start: 20221213, end: 20221220
  2. VORICONAZOLE [Suspect]
     Active Substance: VORICONAZOLE
     Indication: Anti-infective therapy
     Dosage: 0.2 G, 2X/DAY
     Route: 041
     Dates: start: 20221206, end: 20221220
  3. MEROPENEM [Suspect]
     Active Substance: MEROPENEM
     Indication: Anti-infective therapy
     Dosage: 1 G, 2X/DAY
     Route: 041
     Dates: start: 20221208, end: 20221217

REACTIONS (7)
  - Rhythm idioventricular [Fatal]
  - Heart rate decreased [Fatal]
  - Oxygen saturation decreased [Fatal]
  - Blood pressure decreased [Fatal]
  - Abnormal faeces [Unknown]
  - Superinfection [Unknown]
  - Pseudomembranous colitis [Unknown]

NARRATIVE: CASE EVENT DATE: 20221217
